FAERS Safety Report 8965061 (Version 1)
Quarter: 2012Q4

REPORT INFORMATION
  Report Type: 
  Country: US (occurrence: US)
  Receive Date: 20121213
  Receipt Date: 20121213
  Transmission Date: 20130627
  Serious: No
  Sender: FDA-Public Use
  Company Number: US-BRISTOL-MYERS SQUIBB COMPANY-16403453

PATIENT
  Age: 46 Year
  Sex: Female

DRUGS (1)
  1. PRAVASTATIN SODIUM [Suspect]
     Indication: BLOOD CHOLESTEROL INCREASED
     Dates: start: 2011

REACTIONS (5)
  - Alopecia [Unknown]
  - Flatulence [Unknown]
  - Weight increased [Unknown]
  - Gastric disorder [Unknown]
  - Nausea [Unknown]
